FAERS Safety Report 9472795 (Version 1)
Quarter: 2013Q3

REPORT INFORMATION
  Report Type: Spontaneous
  Country: US (occurrence: US)
  Receive Date: 20130823
  Receipt Date: 20130823
  Transmission Date: 20140515
  Serious: Yes (Other)
  Sender: FDA-Public Use
  Company Number: US-PFIZER INC-2013243795

PATIENT
  Sex: Female

DRUGS (2)
  1. VERAPAMIL HCL [Suspect]
     Indication: CARDIAC DISORDER
     Dosage: 300 MG, UNK
     Dates: start: 199901
  2. VERAPAMIL HCL [Suspect]
     Dosage: 300 MG, UNK
     Dates: start: 201209

REACTIONS (1)
  - Cardiac disorder [Unknown]
